FAERS Safety Report 9076557 (Version 1)
Quarter: 2013Q1

REPORT INFORMATION
  Report Type: Spontaneous
  Country: US (occurrence: US)
  Receive Date: 20130129
  Receipt Date: 20130129
  Transmission Date: 20140127
  Serious: No
  Sender: FDA-Public Use
  Company Number: US-ABBOTT-12P-163-0950068-00

PATIENT
  Sex: Female
  Weight: 89.44 kg

DRUGS (1)
  1. HUMIRA 40 MG/0.8 ML PEN [Suspect]
     Indication: RHEUMATOID ARTHRITIS
     Route: 058
     Dates: start: 201202

REACTIONS (3)
  - Liver disorder [Unknown]
  - Injection site pain [Not Recovered/Not Resolved]
  - Urinary tract infection [Recovered/Resolved]
